FAERS Safety Report 6599227-2 (Version None)
Quarter: 2010Q1

REPORT INFORMATION
  Report Type: 
  Country: None (occurrence: None)
  Receive Date: 20100224
  Receipt Date: 20100212
  Transmission Date: 20100710
  Serious: Yes (Other)
  Sender: FDA-Public Use
  Company Number: PHHY2010BR08242

PATIENT
  Age: 51 Year
  Sex: Male

DRUGS (5)
  1. RASILEZ [Suspect]
     Indication: HYPERTENSION
     Dosage: 1 TABLET PER DAY
     Route: 048
     Dates: start: 20100122
  2. GALVUS MET [Suspect]
     Indication: DIABETES MELLITUS
     Dosage: UNK
     Route: 048
     Dates: start: 20100122
  3. APRESOLINE [Suspect]
     Indication: HYPERTENSION
     Dosage: 25 MG PER DAY
     Route: 048
     Dates: start: 20100130
  4. DILTIAZEM HCL [Concomitant]
     Indication: HYPERTENSION
     Dosage: 1 TABLET PER DAY
     Route: 048
  5. GLIMEPIRIDE [Concomitant]
     Indication: DIABETES MELLITUS
     Dosage: 1 TABLET PER DAY
     Route: 048

REACTIONS (2)
  - CHOLURIA [None]
  - DIARRHOEA [None]
